FAERS Safety Report 17529250 (Version 3)
Quarter: 2023Q4

REPORT INFORMATION
  Report Type: Report from Study
  Country: CA (occurrence: None)
  Receive Date: 20200312
  Receipt Date: 20231211
  Transmission Date: 20240110
  Serious: Yes (Death, Hospitalization, Other)
  Sender: FDA-Public Use
  Company Number: CA-ORION CORPORATION ORION PHARMA-TREX2020-1303

PATIENT
  Age: 70 Year
  Sex: Male

DRUGS (12)
  1. METHOTREXATE [Suspect]
     Active Substance: METHOTREXATE
     Indication: Product used for unknown indication
  2. CYCLOSPORINE [Suspect]
     Active Substance: CYCLOSPORINE
     Indication: Product used for unknown indication
  3. COSENTYX [Suspect]
     Active Substance: SECUKINUMAB
     Indication: Psoriatic arthropathy
     Dates: start: 20161118, end: 20161209
  4. COSENTYX [Suspect]
     Active Substance: SECUKINUMAB
     Indication: Psoriasis
     Dosage: LAST MAINTENANCE DOSE
     Dates: start: 20161216, end: 20170216
  5. COSENTYX [Suspect]
     Active Substance: SECUKINUMAB
     Dosage: LOADING DOSE
     Dates: start: 20170725
  6. COSENTYX [Suspect]
     Active Substance: SECUKINUMAB
     Dosage: WEEK 3 OF LOADING DOSE
     Dates: start: 20170808
  7. COSENTYX [Suspect]
     Active Substance: SECUKINUMAB
     Dates: start: 20171122
  8. COSENTYX [Suspect]
     Active Substance: SECUKINUMAB
  9. COSENTYX [Suspect]
     Active Substance: SECUKINUMAB
     Dates: start: 2023
  10. HUMIRA [Suspect]
     Active Substance: ADALIMUMAB
     Indication: Product used for unknown indication
  11. TALTZ [Suspect]
     Active Substance: IXEKIZUMAB
     Indication: Product used for unknown indication
  12. MELOXICAM [Concomitant]
     Active Substance: MELOXICAM

REACTIONS (9)
  - Death [Fatal]
  - Psoriasis [Unknown]
  - Blood creatinine increased [Unknown]
  - Skin ulcer [Not Recovered/Not Resolved]
  - Full blood count decreased [Unknown]
  - Haemoglobin decreased [Unknown]
  - Herpes zoster [Unknown]
  - Infection [Unknown]
  - Skin exfoliation [Unknown]

NARRATIVE: CASE EVENT DATE: 20170810
